FAERS Safety Report 8516678-7 (Version None)
Quarter: 2012Q3

REPORT INFORMATION
  Report Type: 
  Country: None (occurrence: None)
  Receive Date: 20120718
  Receipt Date: 20120712
  Transmission Date: 20120928
  Serious: Yes (Death)
  Sender: FDA-Public Use
  Company Number: DE-JNJFOC-20120705928

PATIENT
  Age: 89 Year
  Sex: Male

DRUGS (11)
  1. ALFUZOSIN HCL [Interacting]
     Indication: DEMENTIA
     Route: 065
  2. MELPERONE [Interacting]
     Indication: DEMENTIA
     Route: 065
  3. HYDROCHLOROTHIAZIDE [Interacting]
     Indication: DEMENTIA
     Route: 065
  4. HALOPERIDOL [Suspect]
     Indication: DEMENTIA
     Route: 065
  5. ACETYLSALICYLIC ACID SRT [Interacting]
     Indication: DEMENTIA
     Route: 065
  6. OXAZEPAM [Interacting]
     Indication: DEMENTIA
     Route: 065
  7. BISOPROLOL FUMARATE [Interacting]
     Indication: DEMENTIA
     Route: 065
  8. ISOSORBIDE DINITRATE [Interacting]
     Indication: DEMENTIA
     Route: 065
  9. RISPERIDONE [Interacting]
     Indication: DEMENTIA
     Route: 065
  10. GALANTAMINE HYDROBROMIDE [Interacting]
     Indication: DEMENTIA
     Route: 065
  11. CAPTOPRIL [Interacting]
     Indication: DEMENTIA
     Route: 065

REACTIONS (2)
  - DRUG INTERACTION [None]
  - DEATH [None]
